FAERS Safety Report 20430411 (Version 1)
Quarter: 2022Q1

REPORT INFORMATION
  Report Type: Spontaneous
  Country: US (occurrence: None)
  Receive Date: 20220203
  Receipt Date: 20220203
  Transmission Date: 20220423
  Serious: Yes (Death, Life-Threatening, Hospitalization, Disabling, Other)
  Sender: FDA-Public Use
  Company Number: None

PATIENT
  Age: 76 Year
  Sex: Male
  Weight: 80.1 kg

DRUGS (8)
  1. KEYTRUDA [Suspect]
     Active Substance: PEMBROLIZUMAB
     Indication: Lung neoplasm malignant
     Dosage: OTHER QUANTITY : 3 IV INFUSIONS;?OTHER FREQUENCY : 3 WEEKS APART;?
     Route: 042
     Dates: start: 20210804, end: 20211101
  2. FLONASE [Concomitant]
     Active Substance: FLUTICASONE PROPIONATE
  3. PREVACID [Concomitant]
     Active Substance: LANSOPRAZOLE
  4. METALOZONE [Concomitant]
  5. BUTMEX [Concomitant]
  6. MILLORONE [Concomitant]
  7. INHALER ALBUTEROL [Concomitant]
  8. ISORBATE [Concomitant]

REACTIONS (12)
  - Cardiac disorder [None]
  - Renal failure [None]
  - Vision blurred [None]
  - Cardiomegaly [None]
  - Gait inability [None]
  - Speech disorder [None]
  - Insomnia [None]
  - Hypophagia [None]
  - Taste disorder [None]
  - Blood disorder [None]
  - Illness [None]
  - Atrial fibrillation [None]

NARRATIVE: CASE EVENT DATE: 20210804
